FAERS Safety Report 10371021 (Version 1)
Quarter: 2014Q3

REPORT INFORMATION
  Report Type: Spontaneous
  Country: US (occurrence: None)
  Receive Date: 20140807
  Receipt Date: 20140807
  Transmission Date: 20150326
  Serious: Yes (Hospitalization)
  Sender: FDA-Public Use
  Company Number: None

PATIENT
  Age: 60 Year
  Sex: Female
  Weight: 70.9 kg

DRUGS (12)
  1. CLONIDINE (CLONIDINE) [Concomitant]
     Active Substance: CLONIDINE
  2. AMITRIPTYLINE (AMITRIPTYLINE) [Concomitant]
     Active Substance: AMITRIPTYLINE
  3. CHLORTHALIDONE (CHLORTHALIDONE) [Concomitant]
  4. SERTRALINE [Concomitant]
     Active Substance: SERTRALINE HYDROCHLORIDE
  5. CARBIDOPA-LEVODOPA [Concomitant]
     Active Substance: CARBIDOPA\LEVODOPA
  6. TRAMADOL (TRAMADOL) [Concomitant]
     Active Substance: TRAMADOL
  7. ERGOCALCIFEROL (ERGOCALCIFEROL) [Concomitant]
     Active Substance: ERGOCALCIFEROL
  8. METHYLENE BLUE 1% AKORN [Suspect]
     Active Substance: METHYLENE BLUE
     Indication: BIOPSY
     Dosage: 2 ML?ONE TIME DOSE?LOCAL INFILTRATION
     Dates: start: 20140801, end: 20140801
  9. LEVOTHYROXINE (LEVOTHYROXINE) [Concomitant]
     Active Substance: LEVOTHYROXINE
  10. HYDROXYZINE (HYDROXYZINE HYDROCHLORIDE) [Concomitant]
  11. LISINOPRIL (LISINOPRIL) [Concomitant]
     Active Substance: LISINOPRIL
  12. ASPIRIN. [Concomitant]
     Active Substance: ASPIRIN

REACTIONS (1)
  - Serotonin syndrome [None]

NARRATIVE: CASE EVENT DATE: 20140801
